FAERS Safety Report 7957452-X (Version None)
Quarter: 2011Q4

REPORT INFORMATION
  Report Type: 
  Country: None (occurrence: None)
  Receive Date: 20111205
  Receipt Date: 20111130
  Transmission Date: 20120403
  Serious: Yes (Hospitalization, Other)
  Sender: FDA-Public Use
  Company Number: FR-PFIZER INC-2011228499

PATIENT
  Age: 87 Year
  Sex: Male

DRUGS (8)
  1. CORDARONE [Concomitant]
     Dosage: 200 MG, UNK
     Route: 048
     Dates: start: 20110501
  2. PANTOPRAZOLE [Suspect]
     Dosage: 40 MG, UNK
     Route: 048
     Dates: start: 20110525, end: 20110612
  3. CALCIPARINE [Concomitant]
     Dosage: UNK
     Dates: start: 20110501
  4. ATORVASTATIN CALCIUM [Suspect]
     Dosage: 40 MG, UNK
     Route: 048
     Dates: start: 20110525, end: 20110624
  5. ATORVASTATIN CALCIUM [Suspect]
     Dosage: UNK
     Route: 048
     Dates: start: 20110101
  6. REPAGLINIDE [Suspect]
     Dosage: 1 MG, UNK
     Route: 048
     Dates: start: 20110101
  7. ASPIRIN [Concomitant]
     Dosage: UNK
     Route: 048
     Dates: start: 20110501
  8. REPAGLINIDE [Suspect]
     Dosage: 1 MG, UNK
     Route: 048
     Dates: start: 20110525, end: 20110617

REACTIONS (3)
  - PROCTOCOLITIS [None]
  - ANAL SPHINCTER ATONY [None]
  - COLITIS [None]
